FAERS Safety Report 4413425-5 (Version None)
Quarter: 2004Q2

REPORT INFORMATION
  Report Type: 
  Country: None (occurrence: None)
  Receive Date: 20040630
  Receipt Date: 20040305
  Transmission Date: 20050107
  Serious: No
  Sender: FDA-Public Use
  Company Number: 04P-163-0252395

PATIENT
  Age: 39 Year
  Sex: Female
  Weight: 53.5244 kg

DRUGS (7)
  1. HUMIRA [Suspect]
     Indication: RHEUMATOID ARTHRITIS
     Dosage: 40 MG, 1 IN 2 WK, SUBCUTANEOUS
     Route: 058
     Dates: start: 20040301
  2. SERTRALINE HYDROCHLORIDE [Concomitant]
  3. BUSPIRONE HYDROCHORIDE [Concomitant]
  4. LACTOLOSE [Concomitant]
  5. DICYCLOMINE HCL [Concomitant]
  6. FLUTICASONE PROPIONATE [Concomitant]
  7. FOLIC ACID [Concomitant]

REACTIONS (1)
  - BLOOD URINE [None]
